FAERS Safety Report 20838550 (Version 1)
Quarter: 2022Q2

REPORT INFORMATION
  Report Type: Spontaneous
  Country: US (occurrence: US)
  Receive Date: 20220517
  Receipt Date: 20220517
  Transmission Date: 20220721
  Serious: Yes (Other)
  Sender: FDA-Public Use
  Company Number: US-PFIZER INC-202200705066

PATIENT
  Age: 44 Year
  Weight: 83 kg

DRUGS (2)
  1. EFFEXOR XR [Suspect]
     Active Substance: VENLAFAXINE HYDROCHLORIDE
     Dosage: 150 MG, 2X/DAY
     Route: 048
     Dates: start: 20210508, end: 20220508
  2. NEURONTIN [Suspect]
     Active Substance: GABAPENTIN
     Dosage: 600 MG (TAKE ONE-HALF TABLET BY MOUTH EVERY MORNING AND 1 AND 1/2 TABLET AT BEDTIME.)
     Route: 048
     Dates: start: 20210508, end: 20220508

REACTIONS (1)
  - Haemorrhoidal haemorrhage [Unknown]
